FAERS Safety Report 5057539-8 (Version None)
Quarter: 2006Q3

REPORT INFORMATION
  Report Type: 
  Country: None (occurrence: None)
  Receive Date: 20060721
  Receipt Date: 20051108
  Transmission Date: 20061208
  Serious: No
  Sender: FDA-Public Use
  Company Number: US-GLAXOSMITHKLINE-A0581464A

PATIENT
  Sex: Male

DRUGS (9)
  1. AVANDIA [Suspect]
     Route: 048
  2. LASIX [Concomitant]
  3. ALLOPURINOL [Concomitant]
  4. METOPROLOL [Concomitant]
  5. ISOSORBIDE [Concomitant]
  6. LISINOPRIL [Concomitant]
  7. SYNTHROID [Concomitant]
  8. POTASSIUM [Concomitant]
  9. INSULIN [Concomitant]

REACTIONS (1)
  - FLUID RETENTION [None]
